FAERS Safety Report 19143150 (Version 1)
Quarter: 2021Q2

REPORT INFORMATION
  Report Type: Spontaneous
  Country: US (occurrence: US)
  Receive Date: 20210416
  Receipt Date: 20210416
  Transmission Date: 20210717
  Serious: No
  Sender: FDA-Public Use
  Company Number: US-TERSERA THERAPEUTICS LLC-2020TRS003901

PATIENT

DRUGS (3)
  1. XERMELO [Suspect]
     Active Substance: TELOTRISTAT ETHYL
     Dosage: 250 MG, TID
     Route: 048
     Dates: start: 20201106
  2. SANDOSTATIN [Concomitant]
     Active Substance: OCTREOTIDE ACETATE
     Indication: PRODUCT USED FOR UNKNOWN INDICATION
     Dosage: MONTHLY
     Route: 065
  3. XERMELO [Suspect]
     Active Substance: TELOTRISTAT ETHYL
     Indication: CARCINOID TUMOUR
     Dosage: 250 MG, TID (TAKE 1 TABLET BY MOUTH 3 TIMES DAILY)
     Route: 048
     Dates: start: 20201105

REACTIONS (4)
  - Blood glucose abnormal [Recovered/Resolved]
  - Diarrhoea [Recovering/Resolving]
  - Blood potassium abnormal [Unknown]
  - Fatigue [Recovered/Resolved]
